FAERS Safety Report 10078223 (Version 2)
Quarter: 2014Q2

REPORT INFORMATION
  Report Type: Spontaneous
  Country: US (occurrence: US)
  Receive Date: 20140415
  Receipt Date: 20140424
  Transmission Date: 20141212
  Serious: No
  Sender: FDA-Public Use
  Company Number: US-009507513-1404USA008129

PATIENT
  Age: 64 Year
  Sex: Male
  Weight: 81 kg

DRUGS (11)
  1. INTRONA [Suspect]
     Indication: MALIGNANT MELANOMA
     Dosage: 39.4 MILLION IU, DAILY
     Route: 042
     Dates: start: 201403
  2. AMBIEN [Concomitant]
     Indication: SLEEP DISORDER
  3. TAMBOCOR [Concomitant]
  4. LIPITOR [Concomitant]
  5. COMPAZINE [Concomitant]
  6. MALARONE [Concomitant]
  7. DIOVAN [Concomitant]
     Indication: HYPERTENSION
  8. TOPROL XL TABLETS [Concomitant]
  9. COUMADIN [Concomitant]
  10. ELIQUIS [Concomitant]
  11. DOSTINEX [Concomitant]

REACTIONS (9)
  - Haematocrit decreased [Unknown]
  - Protein total decreased [Unknown]
  - Red blood cell count decreased [Unknown]
  - Blood alkaline phosphatase increased [Unknown]
  - Alanine aminotransferase increased [Unknown]
  - Aspartate aminotransferase increased [Unknown]
  - Platelet count decreased [Unknown]
  - Haemoglobin decreased [Unknown]
  - White blood cell count decreased [Unknown]
